FAERS Safety Report 4816069-6 (Version None)
Quarter: 2005Q4

REPORT INFORMATION
  Report Type: 
  Country: None (occurrence: None)
  Receive Date: 20051027
  Receipt Date: 20051024
  Transmission Date: 20060501
  Serious: Yes (Life-Threatening, Hospitalization, Disabling, Other)
  Sender: FDA-Public Use
  Company Number: 200511887BWH

PATIENT
  Age: 39 Year
  Sex: Female
  Weight: 73.0291 kg

DRUGS (2)
  1. AVELOX [Suspect]
     Indication: BRONCHITIS CHRONIC
     Dosage: SEE IMAGE
     Route: 048
     Dates: start: 20050906
  2. CELEBREX [Concomitant]

REACTIONS (2)
  - ANAPHYLACTIC REACTION [None]
  - CEREBROVASCULAR ACCIDENT [None]
